FAERS Safety Report 5828503-3 (Version None)
Quarter: 2008Q3

REPORT INFORMATION
  Report Type: 
  Country: None (occurrence: None)
  Receive Date: 20080729
  Receipt Date: 20080729
  Transmission Date: 20090109
  Serious: Yes (Other)
  Sender: FDA-Public Use
  Company Number: None

PATIENT
  Age: 24 Year
  Sex: Male
  Weight: 81.6475 kg

DRUGS (4)
  1. PROSCAR [Suspect]
     Indication: ALOPECIA
     Dosage: 5MG DAILY PO   1MG DAILY PO
     Route: 048
     Dates: start: 20061201, end: 20071021
  2. PROSCAR [Suspect]
     Indication: PROPHYLAXIS
     Dosage: 5MG DAILY PO   1MG DAILY PO
     Route: 048
     Dates: start: 20061201, end: 20071021
  3. PROSCAR [Suspect]
     Indication: ALOPECIA
     Dosage: 5MG DAILY PO   1MG DAILY PO
     Route: 048
     Dates: start: 20080710, end: 20080729
  4. PROSCAR [Suspect]
     Indication: PROPHYLAXIS
     Dosage: 5MG DAILY PO   1MG DAILY PO
     Route: 048
     Dates: start: 20080710, end: 20080729

REACTIONS (9)
  - ALOPECIA [None]
  - DEPRESSION [None]
  - HYPERSENSITIVITY [None]
  - INCORRECT DOSE ADMINISTERED [None]
  - LIBIDO INCREASED [None]
  - PANIC REACTION [None]
  - SELF-MEDICATION [None]
  - SEMEN DISCOLOURATION [None]
  - SEMEN VOLUME INCREASED [None]
